FAERS Safety Report 12674380 (Version 1)
Quarter: 2016Q3

REPORT INFORMATION
  Report Type: Spontaneous
  Country: US (occurrence: US)
  Receive Date: 20160822
  Receipt Date: 20160822
  Transmission Date: 20161109
  Serious: No
  Sender: FDA-Public Use
  Company Number: US-BEH-2015056840

PATIENT
  Age: 62 Year
  Sex: Female
  Weight: 78.47 kg

DRUGS (20)
  1. SODIUM CHLORIDE. [Concomitant]
     Active Substance: SODIUM CHLORIDE
  2. EPIPEN [Concomitant]
     Active Substance: EPINEPHRINE
  3. FISH OIL [Concomitant]
     Active Substance: FISH OIL
  4. OXYGEN. [Concomitant]
     Active Substance: OXYGEN
  5. ATORVASTATIN [Concomitant]
     Active Substance: ATORVASTATIN
  6. TYLENOL [Concomitant]
     Active Substance: ACETAMINOPHEN
  7. CINNAMON PLUS CHROMIUM [Concomitant]
  8. LIDOCAINE. [Concomitant]
     Active Substance: LIDOCAINE
  9. CO-Q 10 [Concomitant]
  10. PREDNISONE. [Concomitant]
     Active Substance: PREDNISONE
  11. ZEMAIRA [Suspect]
     Active Substance: .ALPHA.1-PROTEINASE INHIBITOR HUMAN
     Indication: ALPHA-1 ANTI-TRYPSIN DEFICIENCY
     Route: 042
     Dates: start: 20151111
  12. CLOZAPINE. [Concomitant]
     Active Substance: CLOZAPINE
  13. SEROQUEL [Concomitant]
     Active Substance: QUETIAPINE FUMARATE
  14. ASPIRIN. [Concomitant]
     Active Substance: ASPIRIN
  15. GINGER. [Concomitant]
     Active Substance: GINGER
  16. DIPHENHYDRAMINE. [Concomitant]
     Active Substance: DIPHENHYDRAMINE
  17. KLONOPIN [Concomitant]
     Active Substance: CLONAZEPAM
  18. TURMERIC [Concomitant]
     Active Substance: TURMERIC
  19. GRAPE SEED [Concomitant]
  20. ONE-A-DAY [Concomitant]

REACTIONS (4)
  - Fatigue [Recovering/Resolving]
  - Influenza like illness [Unknown]
  - Heart rate increased [Recovering/Resolving]
  - Dyspnoea [Recovering/Resolving]

NARRATIVE: CASE EVENT DATE: 20151111
